FAERS Safety Report 22601230 (Version 1)
Quarter: 2023Q2

REPORT INFORMATION
  Report Type: Spontaneous
  Country: US (occurrence: US)
  Receive Date: 20230614
  Receipt Date: 20230614
  Transmission Date: 20230722
  Serious: No
  Sender: FDA-Public Use
  Company Number: US-RIGEL PHARMACEUTICALS, INC.-2022FOS001049

PATIENT
  Sex: Female

DRUGS (2)
  1. TAVALISSE [Suspect]
     Active Substance: FOSTAMATINIB
     Indication: Immune thrombocytopenia
     Dosage: 150 MG, BID, 1 IN THE MORNING, 1 BEFORE BEDTIME
     Route: 048
     Dates: start: 20221213
  2. TAVALISSE [Suspect]
     Active Substance: FOSTAMATINIB
     Dosage: 100 MG, QD, IN THE MORNING
     Route: 048
     Dates: start: 20221117, end: 2022

REACTIONS (2)
  - Pruritus [Unknown]
  - Calcinosis [Unknown]

NARRATIVE: CASE EVENT DATE: 20220101
